FAERS Safety Report 23850149 (Version 1)
Quarter: 2024Q2

REPORT INFORMATION
  Report Type: Report from Study
  Country: US (occurrence: US)
  Receive Date: 20240513
  Receipt Date: 20240513
  Transmission Date: 20240716
  Serious: Yes (Other)
  Sender: FDA-Public Use
  Company Number: US-OTSUKA-2024_013222

PATIENT
  Sex: Female

DRUGS (1)
  1. DEXTROMETHORPHAN HYDROBROMIDE\QUINIDINE SULFATE [Suspect]
     Active Substance: DEXTROMETHORPHAN HYDROBROMIDE\QUINIDINE SULFATE
     Indication: Upper motor neurone lesion
     Dosage: 1 DF, BID (EVERY 12 HOURS)
     Route: 048

REACTIONS (9)
  - Gait inability [Unknown]
  - Head injury [Unknown]
  - Inappropriate affect [Not Recovered/Not Resolved]
  - Crying [Not Recovered/Not Resolved]
  - Balance disorder [Unknown]
  - Depression [Not Recovered/Not Resolved]
  - Fall [Unknown]
  - Product use in unapproved indication [Unknown]
  - Therapy interrupted [Unknown]
